FAERS Safety Report 24026151 (Version 1)
Quarter: 2024Q2

REPORT INFORMATION
  Report Type: Report from Study
  Country: US (occurrence: US)
  Receive Date: 20240628
  Receipt Date: 20240628
  Transmission Date: 20240716
  Serious: No
  Sender: FDA-Public Use
  Company Number: US-ROCHE-3368861

PATIENT

DRUGS (2)
  1. ALECTINIB [Suspect]
     Active Substance: ALECTINIB
     Indication: Non-small cell lung cancer metastatic
     Route: 065
  2. ALECTINIB [Suspect]
     Active Substance: ALECTINIB
     Route: 065

REACTIONS (11)
  - Fatigue [Unknown]
  - Anaemia [Unknown]
  - Constipation [Unknown]
  - Blood bilirubin increased [Unknown]
  - Blood alkaline phosphatase increased [Unknown]
  - Neuropathy peripheral [Unknown]
  - Diarrhoea [Unknown]
  - Myalgia [Unknown]
  - Aspartate aminotransferase increased [Unknown]
  - Oedema peripheral [Unknown]
  - Rash pruritic [Unknown]
